FAERS Safety Report 5030500-5 (Version None)
Quarter: 2006Q2

REPORT INFORMATION
  Report Type: 
  Country: None (occurrence: None)
  Receive Date: 20060620
  Receipt Date: 20060612
  Transmission Date: 20061013
  Serious: Yes (Life-Threatening, Other)
  Sender: FDA-Public Use
  Company Number: JP-ABBOTT-06P-087-0335737-00

PATIENT
  Age: 57 Year
  Sex: Male
  Weight: 58 kg

DRUGS (7)
  1. SEVOFRANE LIQUID FOR INHALATION [Suspect]
     Indication: MAINTENANCE OF ANAESTHESIA
     Route: 055
  2. FENTANYL TRANSDERMAL SYSTEM [Suspect]
     Indication: INDUCTION OF ANAESTHESIA
     Route: 065
  3. FENTANYL TRANSDERMAL SYSTEM [Suspect]
     Indication: MAINTENANCE OF ANAESTHESIA
     Route: 065
  4. MIDAZOLAM [Suspect]
     Indication: INDUCTION OF ANAESTHESIA
     Route: 065
  5. VECURONIUM BROMIDE [Suspect]
     Indication: HYPOTONIA
     Route: 065
  6. VECURONIUM BROMIDE [Suspect]
     Indication: MAINTENANCE OF ANAESTHESIA
     Route: 065
  7. PROPOFOL [Suspect]
     Indication: MAINTENANCE OF ANAESTHESIA
     Route: 065

REACTIONS (2)
  - BLOOD CREATINE PHOSPHOKINASE INCREASED [None]
  - CHILLS [None]
